FAERS Safety Report 4323094-0 (Version None)
Quarter: 2004Q1

REPORT INFORMATION
  Report Type: 
  Country: None (occurrence: None)
  Receive Date: 20040322
  Receipt Date: 20040305
  Transmission Date: 20041129
  Serious: Yes (Hospitalization)
  Sender: FDA-Public Use
  Company Number: 184390

PATIENT
  Age: 49 Year
  Sex: Female

DRUGS (16)
  1. AVONEX [Suspect]
     Indication: MULTIPLE SCLEROSIS
     Dosage: 30 MCG QW IM
     Route: 030
     Dates: start: 20011022, end: 20030915
  2. PROVIGIL [Concomitant]
  3. PREMARIN [Concomitant]
  4. ZYRTEC [Concomitant]
  5. COMBIVENT [Concomitant]
  6. FLAXSEED OIL [Concomitant]
  7. FISH OIL [Concomitant]
  8. CALCIUM [Concomitant]
  9. MAGNESIUM [Concomitant]
  10. ZINK [Concomitant]
  11. VITAMIN D [Concomitant]
  12. ACIDOPHILUS [Concomitant]
  13. SELENIUM TRACE METAL ADDITIVE [Concomitant]
  14. VITAMIN B COMPLEX WITH C [Concomitant]
  15. LECITHIN [Concomitant]
  16. ALPHA LIPOIC ACID [Concomitant]

REACTIONS (2)
  - CEREBROVASCULAR ACCIDENT [None]
  - DEPRESSION [None]
